FAERS Safety Report 13521579 (Version 1)
Quarter: 2017Q2

REPORT INFORMATION
  Report Type: Spontaneous
  Country: US (occurrence: US)
  Receive Date: 20170506
  Receipt Date: 20170506
  Transmission Date: 20170830
  Serious: Yes (Life-Threatening, Disabling)
  Sender: FDA-Public Use
  Company Number: None

PATIENT
  Age: 48 Year
  Sex: Female
  Weight: 65.25 kg

DRUGS (1)
  1. TOPAMAX [Suspect]
     Active Substance: TOPIRAMATE
     Route: 048
     Dates: start: 20170202

REACTIONS (8)
  - Malaise [None]
  - Myalgia [None]
  - Depressed mood [None]
  - Epistaxis [None]
  - Confusional state [None]
  - Dysuria [None]
  - Diarrhoea [None]
  - Decreased activity [None]

NARRATIVE: CASE EVENT DATE: 20170202
